FAERS Safety Report 15180271 (Version 1)
Quarter: 2018Q3

REPORT INFORMATION
  Report Type: Spontaneous
  Country: IT (occurrence: IT)
  Receive Date: 20180723
  Receipt Date: 20180723
  Transmission Date: 20181010
  Serious: Yes (Hospitalization)
  Sender: FDA-Public Use
  Company Number: IT-PFIZER INC-2018294612

PATIENT
  Age: 84 Year
  Sex: Female

DRUGS (4)
  1. TACHIPIRINA [Suspect]
     Active Substance: ACETAMINOPHEN
     Indication: PAIN
     Dosage: 1000 MG, 1X/DAY
     Route: 048
     Dates: start: 20171111, end: 20171111
  2. CARDIOASPIRIN [Concomitant]
     Active Substance: ASPIRIN
     Dosage: UNK
  3. DOBETIN /00056201/ [Concomitant]
     Active Substance: CYANOCOBALAMIN
     Dosage: UNK
  4. NEURONTIN [Suspect]
     Active Substance: GABAPENTIN
     Indication: RESTLESS LEGS SYNDROME
     Dosage: 300 MG, 1X/DAY
     Route: 048
     Dates: start: 20171103, end: 20171111

REACTIONS (4)
  - Product use in unapproved indication [Unknown]
  - Loss of consciousness [Unknown]
  - Presyncope [Unknown]
  - Malaise [Unknown]

NARRATIVE: CASE EVENT DATE: 20171103
